FAERS Safety Report 4389042-2 (Version None)
Quarter: 2004Q2

REPORT INFORMATION
  Report Type: 
  Country: None (occurrence: None)
  Receive Date: 20040628
  Receipt Date: 20040615
  Transmission Date: 20050107
  Serious: Yes (Other)
  Sender: FDA-Public Use
  Company Number: 2004219337HU

PATIENT
  Age: 66 Year
  Sex: Female

DRUGS (10)
  1. CELEBREX [Suspect]
     Indication: ARTHRALGIA
     Dosage: 200 MG , BID, ORAL
     Route: 048
     Dates: start: 20040422, end: 20040422
  2. COVEREX (PERINDOPRIL) [Concomitant]
  3. BETALOC [Concomitant]
  4. NITROMINT [Concomitant]
  5. QUAMATEL [Concomitant]
  6. FURON [Concomitant]
  7. KALIUM RETARD [Concomitant]
  8. DICLOFENAC SODIUM [Concomitant]
  9. TRAMADOL HCL [Concomitant]
  10. SYNCUMAR [Concomitant]

REACTIONS (3)
  - AGGRESSION [None]
  - CONFUSIONAL STATE [None]
  - SCREAMING [None]
